FAERS Safety Report 5141385-0 (Version None)
Quarter: 2006Q4

REPORT INFORMATION
  Report Type: 
  Country: None (occurrence: None)
  Receive Date: 20061101
  Receipt Date: 20030513
  Transmission Date: 20070319
  Serious: Yes (Hospitalization)
  Sender: FDA-Public Use
  Company Number: FR-GLAXOSMITHKLINE-B0299898A

PATIENT
  Age: 36 Year
  Sex: Female

DRUGS (3)
  1. LAMICTAL [Suspect]
     Indication: TEMPORAL LOBE EPILEPSY
     Route: 048
     Dates: start: 20030408, end: 20030506
  2. EFFERALGAN [Concomitant]
     Route: 048
  3. OROPIVALONE [Concomitant]
     Route: 048

REACTIONS (18)
  - ANAEMIA [None]
  - BLOOD ALKALINE PHOSPHATASE INCREASED [None]
  - BLOOD LACTATE DEHYDROGENASE INCREASED [None]
  - DRUG RASH WITH EOSINOPHILIA AND SYSTEMIC SYMPTOMS [None]
  - EOSINOPHILIA [None]
  - FACE OEDEMA [None]
  - HYPERSENSITIVITY [None]
  - LEUKOCYTOSIS [None]
  - LYMPHADENOPATHY [None]
  - LYMPHOCYTOSIS [None]
  - NEUTROPENIA [None]
  - OEDEMA PERIPHERAL [None]
  - PRURIGO [None]
  - PURPURA [None]
  - PYREXIA [None]
  - RASH MACULO-PAPULAR [None]
  - TOXIC SKIN ERUPTION [None]
  - TRANSAMINASES INCREASED [None]
